FAERS Safety Report 5920205-8 (Version None)
Quarter: 2008Q4

REPORT INFORMATION
  Report Type: 
  Country: None (occurrence: None)
  Receive Date: 20081016
  Receipt Date: 20071029
  Transmission Date: 20090506
  Serious: No
  Sender: FDA-Public Use
  Company Number: A0690315A

PATIENT
  Age: 6 Year
  Sex: Female

DRUGS (2)
  1. CEFUROXIME AXETIL [Suspect]
     Indication: LYME DISEASE
     Dosage: 1.5TAB TWICE PER DAY
     Route: 048
     Dates: start: 20071019, end: 20071020
  2. NO CONCURRENT MEDICATION [Concomitant]

REACTIONS (1)
  - VOMITING [None]
